FAERS Safety Report 8336101-5 (Version None)
Quarter: 2012Q2

REPORT INFORMATION
  Report Type: 
  Country: None (occurrence: None)
  Receive Date: 20120504
  Receipt Date: 20120425
  Transmission Date: 20120825
  Serious: Yes (Hospitalization)
  Sender: FDA-Public Use
  Company Number: US-VERTEX PHARMACEUTICALS INC.-AE-2012-005953

PATIENT
  Sex: Female

DRUGS (2)
  1. INTERFERON [Concomitant]
     Route: 058
  2. INCIVEK [Suspect]
     Indication: HEPATITIS C

REACTIONS (3)
  - VOMITING [None]
  - DIARRHOEA [None]
  - MENTAL IMPAIRMENT [None]
